FAERS Safety Report 18472042 (Version 1)
Quarter: 2020Q4

REPORT INFORMATION
  Report Type: Spontaneous
  Country: US (occurrence: US)
  Receive Date: 20201106
  Receipt Date: 20201106
  Transmission Date: 20210114
  Serious: No
  Sender: FDA-Public Use
  Company Number: US-GLAXOSMITHKLINE-US2020214310

PATIENT
  Age: 75 Year
  Sex: Male

DRUGS (4)
  1. VOLTAREN ARTHRITIS PAIN [Suspect]
     Active Substance: DICLOFENAC SODIUM
     Indication: ARTHRITIS
  2. GABAPENTIN. [Suspect]
     Active Substance: GABAPENTIN
     Indication: NECK PAIN
     Dosage: UNK
  3. VOLTAREN ARTHRITIS PAIN [Suspect]
     Active Substance: DICLOFENAC SODIUM
     Indication: ARTHRALGIA
     Dosage: UNK UNK, BID
     Dates: start: 20201025, end: 20201026
  4. GABAPENTIN. [Suspect]
     Active Substance: GABAPENTIN
     Indication: ARTHRALGIA

REACTIONS (5)
  - Pruritus [Unknown]
  - Swelling face [Unknown]
  - Head discomfort [Unknown]
  - Inappropriate schedule of product administration [Unknown]
  - Rash [Unknown]

NARRATIVE: CASE EVENT DATE: 20201026
